FAERS Safety Report 17360372 (Version 1)
Quarter: 2020Q1

REPORT INFORMATION
  Report Type: Spontaneous
  Country: US (occurrence: US)
  Receive Date: 20200131
  Receipt Date: 20200131
  Transmission Date: 20200409
  Serious: No
  Sender: FDA-Public Use
  Company Number: None

PATIENT
  Age: 30 Year
  Sex: Female
  Weight: 87.75 kg

DRUGS (2)
  1. METRONIDAZOLE 500MG TABLETS [Suspect]
     Active Substance: METRONIDAZOLE
     Indication: BACTERIAL VAGINOSIS
     Dosage: ?          QUANTITY:14 TABLET(S);?
     Route: 048
     Dates: start: 20200128, end: 20200130
  2. HERBAL SLIMMING TEA [Concomitant]

REACTIONS (11)
  - Eye pain [None]
  - Sleep disorder [None]
  - Headache [None]
  - Decreased appetite [None]
  - Dizziness [None]
  - Pain in extremity [None]
  - Hypoaesthesia oral [None]
  - Confusional state [None]
  - Chromaturia [None]
  - Dysgeusia [None]
  - Depression [None]

NARRATIVE: CASE EVENT DATE: 20200131
